FAERS Safety Report 9203368 (Version 1)
Quarter: 2013Q2

REPORT INFORMATION
  Report Type: Spontaneous
  Country: US (occurrence: US)
  Receive Date: 20130402
  Receipt Date: 20130402
  Transmission Date: 20140414
  Serious: No
  Sender: FDA-Public Use
  Company Number: US-009507513-1304USA000493

PATIENT
  Sex: 0

DRUGS (1)
  1. FOLLISTIM AQ CARTRIDGE [Suspect]
     Dosage: 150 IU, QD
     Route: 058
     Dates: start: 20130323

REACTIONS (5)
  - Drug dose omission [Unknown]
  - Wrong technique in drug usage process [Unknown]
  - Underdose [Unknown]
  - Product packaging quantity issue [Unknown]
  - No adverse event [Unknown]
